FAERS Safety Report 21126266 (Version 2)
Quarter: 2022Q3

REPORT INFORMATION
  Report Type: Report from Study
  Country: IT (occurrence: IT)
  Receive Date: 20220725
  Receipt Date: 20220805
  Transmission Date: 20221027
  Serious: Yes (Other)
  Sender: FDA-Public Use
  Company Number: IT-NOVARTISPH-NVSC2022IT161680

PATIENT
  Age: 79 Year
  Sex: Male
  Weight: 80 kg

DRUGS (4)
  1. TRAMETINIB [Suspect]
     Active Substance: TRAMETINIB
     Indication: Thyroid cancer
     Dosage: 2 MG, QD (2MG/DIE)
     Route: 048
     Dates: start: 20211214, end: 20220624
  2. TRAMETINIB [Suspect]
     Active Substance: TRAMETINIB
     Dosage: 2 MG, QD (2MG/DIE)
     Route: 048
     Dates: start: 20220630
  3. TAFINLAR [Suspect]
     Active Substance: DABRAFENIB MESYLATE
     Indication: Thyroid cancer
     Dosage: 300 MG, QD (150MGX2/DIE)
     Route: 048
     Dates: start: 20211214, end: 20220624
  4. TAFINLAR [Suspect]
     Active Substance: DABRAFENIB MESYLATE
     Dosage: 300 MG, QD (150MGX2/DIE)
     Route: 048
     Dates: start: 20220630

REACTIONS (1)
  - Thrombocytopenia [Recovered/Resolved]

NARRATIVE: CASE EVENT DATE: 20220623
